FAERS Safety Report 12652318 (Version 7)
Quarter: 2018Q2

REPORT INFORMATION
  Report Type: Spontaneous
  Country: US (occurrence: US)
  Receive Date: 20160815
  Receipt Date: 20180627
  Transmission Date: 20180711
  Serious: Yes (Other)
  Sender: FDA-Public Use
  Company Number: PHEH2016US020330

PATIENT
  Sex: Female
  Weight: 63.5 kg

DRUGS (2)
  1. ZOFRAN [Suspect]
     Active Substance: ONDANSETRON HYDROCHLORIDE
     Indication: PRODUCT USED FOR UNKNOWN INDICATION
     Dosage: UNK
     Route: 048
  2. ONDANSETRON DR REDDY [Suspect]
     Active Substance: ONDANSETRON
     Indication: VOMITING IN PREGNANCY
     Dosage: 1 DF, Q8H, AS NEEDED (PRN)
     Route: 048
     Dates: start: 20081126, end: 200901

REACTIONS (15)
  - Vaginal haemorrhage [Unknown]
  - Oropharyngeal pain [Unknown]
  - Carpal tunnel syndrome [Unknown]
  - Injury [Unknown]
  - Cough [Unknown]
  - Haemorrhage in pregnancy [Unknown]
  - Bacterial vulvovaginitis [Unknown]
  - Pain [Unknown]
  - Arthralgia [Unknown]
  - Genitourinary tract infection [Unknown]
  - Pelvic pain [Unknown]
  - Back pain [Unknown]
  - Product use issue [Unknown]
  - Maternal exposure during pregnancy [Unknown]
  - Muscle spasms [Unknown]
